FAERS Safety Report 22228998 (Version 2)
Quarter: 2024Q1

REPORT INFORMATION
  Report Type: Spontaneous
  Country: JP (occurrence: JP)
  Receive Date: 20230419
  Receipt Date: 20240227
  Transmission Date: 20240409
  Serious: Yes (Other)
  Sender: FDA-Public Use
  Company Number: JP-BAYER-2023A048105

PATIENT
  Age: 79 Year
  Sex: Female

DRUGS (1)
  1. IOPAMIRON [Suspect]
     Active Substance: IOPAMIDOL
     Indication: Computerised tomogram pelvis
     Dosage: UNK UNK, SINGLE
     Route: 042
     Dates: start: 20211109, end: 20211109

REACTIONS (3)
  - Compartment syndrome [Recovering/Resolving]
  - Infusion site extravasation [Unknown]
  - Carpal tunnel syndrome [Recovering/Resolving]

NARRATIVE: CASE EVENT DATE: 20211109
